FAERS Safety Report 16112511 (Version 1)
Quarter: 2019Q1

REPORT INFORMATION
  Report Type: Spontaneous
  Country: FR (occurrence: FR)
  Receive Date: 20190325
  Receipt Date: 20190325
  Transmission Date: 20190418
  Serious: Yes (Hospitalization, Other)
  Sender: FDA-Public Use
  Company Number: FR-PFIZER INC-2019123787

PATIENT
  Age: 54 Year
  Sex: Male

DRUGS (1)
  1. DALACINE [Suspect]
     Active Substance: CLINDAMYCIN
     Indication: ARTHRITIS INFECTIVE
     Dosage: 1800 MG, 1X/DAY
     Route: 048
     Dates: start: 20190106, end: 20190108

REACTIONS (3)
  - Anaphylactic reaction [Recovered/Resolved]
  - Respiratory distress [Recovered/Resolved]
  - Rash erythematous [Recovered/Resolved]

NARRATIVE: CASE EVENT DATE: 20190108
